FAERS Safety Report 9778419 (Version 1)
Quarter: 2013Q4

REPORT INFORMATION
  Report Type: Spontaneous
  Country: US (occurrence: None)
  Receive Date: 20131220
  Receipt Date: 20131220
  Transmission Date: 20140711
  Serious: No
  Sender: FDA-Public Use
  Company Number: None

PATIENT
  Age: 9 Year
  Sex: Male
  Weight: 28.12 kg

DRUGS (6)
  1. CLONIDINE HYDROCHLORIDE EXTENDED-RELEASE [Suspect]
     Indication: ATTENTION DEFICIT/HYPERACTIVITY DISORDER
     Route: 048
     Dates: start: 20131107, end: 20131231
  2. CLONIDINE HYDROCHLORIDE EXTENDED-RELEASE [Suspect]
     Route: 048
     Dates: start: 20131107, end: 20131231
  3. V.. [Concomitant]
  4. PRILOSEC [Concomitant]
  5. METFORMIN [Concomitant]
  6. TRAZADONE [Concomitant]

REACTIONS (5)
  - Drug ineffective [None]
  - Product substitution issue [None]
  - Psychomotor hyperactivity [None]
  - Abnormal behaviour [None]
  - Insomnia [None]
